FAERS Safety Report 7966195 (Version 2)
Quarter: 2013Q3

REPORT INFORMATION
  Report Type: Report from Study
  Country: MX (occurrence: MX)
  Receive Date: 20110531
  Receipt Date: 20130708
  Transmission Date: 20140515
  Serious: Yes (Other)
  Sender: FDA-Public Use
  Company Number: PHHY2011MX43498

PATIENT
  Age: 40 Year
  Sex: Female

DRUGS (2)
  1. CO-DIOVAN [Suspect]
     Indication: HYPERTENSION
     Dosage: 80 MG VALS AND 12.5 MG (1 DF PER DAY)
     Dates: start: 200801
  2. CO-DIOVAN [Suspect]
     Dosage: 80 MG VALS AND 12.5 MG (2 DF PER DAY)
     Dates: start: 201104

REACTIONS (4)
  - Asphyxia [Unknown]
  - Heart rate increased [Unknown]
  - Blood pressure increased [Unknown]
  - Paraesthesia [Unknown]
